FAERS Safety Report 19919891 (Version 1)
Quarter: 2021Q4

REPORT INFORMATION
  Report Type: Other
  Country: ES (occurrence: ES)
  Receive Date: 20211005
  Receipt Date: 20211005
  Transmission Date: 20220303
  Serious: Yes (Death, Other)
  Sender: FDA-Public Use
  Company Number: ES-ROCHE-2373531

PATIENT

DRUGS (4)
  1. BEVACIZUMAB [Suspect]
     Active Substance: BEVACIZUMAB
     Indication: Colorectal cancer metastatic
     Dosage: COHORT A
     Route: 042
  2. OXALIPLATIN [Suspect]
     Active Substance: OXALIPLATIN
     Indication: Colorectal cancer metastatic
     Route: 042
  3. TIPIRACIL HYDROCHLORIDE\TRIFLURIDINE [Suspect]
     Active Substance: TIPIRACIL HYDROCHLORIDE\TRIFLURIDINE
     Indication: Colorectal cancer metastatic
     Route: 048
  4. NIVOLUMAB [Suspect]
     Active Substance: NIVOLUMAB
     Indication: Colorectal cancer metastatic
     Route: 042

REACTIONS (24)
  - Neutropenia [Unknown]
  - Febrile neutropenia [Unknown]
  - Anaemia [Unknown]
  - Lymphopenia [Unknown]
  - Pancytopenia [Unknown]
  - Thrombocytopenia [Unknown]
  - Colonic fistula [Unknown]
  - Diarrhoea [Unknown]
  - Vomiting [Unknown]
  - Enteritis [Unknown]
  - Pancreatitis [Unknown]
  - Pneumonitis [Fatal]
  - Pulmonary embolism [Unknown]
  - Myocardial infarction [Unknown]
  - Pericardial effusion [Unknown]
  - Neutrophil count decreased [Unknown]
  - Staphylococcus test positive [Unknown]
  - Deep vein thrombosis [Unknown]
  - Hypertension [Unknown]
  - Abdominal abscess [Unknown]
  - Stoma site haemorrhage [Unknown]
  - Muscular weakness [Unknown]
  - Malignant neoplasm progression [Fatal]
  - Female genital tract fistula [Unknown]
